FAERS Safety Report 5575266-5 (Version None)
Quarter: 2007Q4

REPORT INFORMATION
  Report Type: 
  Country: None (occurrence: None)
  Receive Date: 20071221
  Receipt Date: 20071217
  Transmission Date: 20080405
  Serious: Yes (Hospitalization)
  Sender: FDA-Public Use
  Company Number: 230563J07USA

PATIENT
  Age: 40 Year
  Sex: Female
  Weight: 51.2565 kg

DRUGS (3)
  1. REBIF [Suspect]
     Indication: MULTIPLE SCLEROSIS
     Dosage: 8.8 MCG, 3 IN 1 WEEKS, SUBCUTANEOUS, 44 MCG, 3 IN 1 WEEKS, SUBCUTANEOUS, 8.8 MCG, 3 IN 1 WEEKS, SUBC
     Route: 058
     Dates: start: 20071119, end: 20071123
  2. REBIF [Suspect]
     Indication: MULTIPLE SCLEROSIS
     Dosage: 8.8 MCG, 3 IN 1 WEEKS, SUBCUTANEOUS, 44 MCG, 3 IN 1 WEEKS, SUBCUTANEOUS, 8.8 MCG, 3 IN 1 WEEKS, SUBC
     Route: 058
     Dates: start: 20070101, end: 20071216
  3. REBIF [Suspect]
     Indication: MULTIPLE SCLEROSIS
     Dosage: 8.8 MCG, 3 IN 1 WEEKS, SUBCUTANEOUS, 44 MCG, 3 IN 1 WEEKS, SUBCUTANEOUS, 8.8 MCG, 3 IN 1 WEEKS, SUBC
     Route: 058
     Dates: start: 20071217

REACTIONS (2)
  - ANXIETY [None]
  - SARCOIDOSIS [None]
